FAERS Safety Report 5256424-6 (Version None)
Quarter: 2007Q1

REPORT INFORMATION
  Report Type: 
  Country: None (occurrence: None)
  Receive Date: 20070306
  Receipt Date: 20070223
  Transmission Date: 20070707
  Serious: Yes (Hospitalization)
  Sender: FDA-Public Use
  Company Number: US-KINGPHARMUSA00001-K200700221

PATIENT

DRUGS (8)
  1. ALTACE [Suspect]
     Dosage: 1.25 MG, QD
     Dates: start: 20061026
  2. SPIRONOLACTONE [Suspect]
     Dosage: 12.5 MG, QD
     Dates: start: 20061026
  3. CARVEDILOL [Suspect]
     Dosage: 6.5 MG, QD
     Dates: start: 20060501
  4. TORASEMID SANDOZ [Suspect]
     Dosage: 5 MG, QD
     Dates: start: 20060501
  5. SIMVASTATIN [Concomitant]
     Dosage: 20 MG, UNK
     Dates: start: 20060501
  6. INSULIN [Concomitant]
     Dates: start: 20060515
  7. ASPIRIN [Concomitant]
     Dosage: 100 MG, UNK
     Dates: start: 20060515
  8. CLOPIDOGREL [Concomitant]
     Dosage: 75 MG, UNK
     Dates: start: 20060515

REACTIONS (4)
  - DIZZINESS [None]
  - HYPERHIDROSIS [None]
  - HYPOTENSION [None]
  - HYPOTONIA [None]
